FAERS Safety Report 23678715 (Version 2)
Quarter: 2024Q2

REPORT INFORMATION
  Report Type: Spontaneous
  Country: IT (occurrence: IT)
  Receive Date: 20240327
  Receipt Date: 20240408
  Transmission Date: 20240716
  Serious: Yes (Life-Threatening, Other)
  Sender: FDA-Public Use
  Company Number: IT-SHIONOGI B.V.-2024000700

PATIENT

DRUGS (7)
  1. CEFIDEROCOL SULFATE TOSYLATE [Suspect]
     Active Substance: CEFIDEROCOL SULFATE TOSYLATE
     Indication: Klebsiella infection
     Dosage: 2 G (LOADING DOSE)
     Route: 042
     Dates: start: 2023
  2. CEFIDEROCOL SULFATE TOSYLATE [Suspect]
     Active Substance: CEFIDEROCOL SULFATE TOSYLATE
     Dosage: 2 G, 8 HOUR (OVER 8HR INFUSION)
     Route: 042
     Dates: start: 202301, end: 20230121
  3. FOSFOMYCIN [Suspect]
     Active Substance: FOSFOMYCIN
     Indication: Klebsiella infection
     Dosage: 6 G (LOADING DOSE)
     Route: 042
     Dates: start: 20221031
  4. FOSFOMYCIN [Suspect]
     Active Substance: FOSFOMYCIN
     Indication: Pseudomonas infection
     Dosage: 16 G, QD
     Route: 042
     Dates: start: 2022, end: 20230121
  5. AVIBACTAM SODIUM\CEFTAZIDIME [Suspect]
     Active Substance: AVIBACTAM SODIUM\CEFTAZIDIME
     Indication: Pseudomonas infection
     Dosage: 7.5 G, 1 DAY
     Route: 042
     Dates: start: 2022, end: 2022
  6. AVIBACTAM SODIUM\CEFTAZIDIME [Suspect]
     Active Substance: AVIBACTAM SODIUM\CEFTAZIDIME
     Indication: Klebsiella infection
     Dosage: 2.5 G
     Route: 042
     Dates: start: 2022, end: 2022
  7. AVIBACTAM SODIUM\CEFTAZIDIME [Suspect]
     Active Substance: AVIBACTAM SODIUM\CEFTAZIDIME
     Dosage: UNK
     Route: 042
     Dates: start: 20221031, end: 20221115

REACTIONS (4)
  - Septic shock [Unknown]
  - Drug resistance [Unknown]
  - Drug effective for unapproved indication [Unknown]
  - Off label use [Unknown]

NARRATIVE: CASE EVENT DATE: 20230103
